FAERS Safety Report 6551156-6 (Version None)
Quarter: 2010Q1

REPORT INFORMATION
  Report Type: 
  Country: None (occurrence: None)
  Receive Date: 20100121
  Receipt Date: 20100107
  Transmission Date: 20100710
  Serious: Yes (Other)
  Sender: FDA-Public Use
  Company Number: 2010AP000055

PATIENT

DRUGS (1)
  1. OMEPRAZOLE [Suspect]
     Dosage: 20 MG; PO
     Route: 048

REACTIONS (3)
  - FAECES HARD [None]
  - FOOD INTOLERANCE [None]
  - HYPERSENSITIVITY [None]
